FAERS Safety Report 12294128 (Version 3)
Quarter: 2016Q3

REPORT INFORMATION
  Report Type: Report from Study
  Country: US (occurrence: US)
  Receive Date: 20160422
  Receipt Date: 20160725
  Transmission Date: 20161109
  Serious: Yes (Other)
  Sender: FDA-Public Use
  Company Number: PHEH2016US009894

PATIENT
  Age: 62 Year
  Sex: Female
  Weight: 61.3 kg

DRUGS (2)
  1. ENTRESTO [Suspect]
     Active Substance: SACUBITRIL\VALSARTAN
     Dosage: 0.5 DF, BID
     Route: 048
     Dates: end: 20160513
  2. ENTRESTO [Suspect]
     Active Substance: SACUBITRIL\VALSARTAN
     Indication: CARDIAC FAILURE CHRONIC
     Dosage: 50 MG, BID
     Route: 048
     Dates: start: 20160426

REACTIONS (12)
  - Eye pain [Unknown]
  - Fatigue [Unknown]
  - Musculoskeletal pain [Recovering/Resolving]
  - Rash [Recovered/Resolved]
  - Vitreous floaters [Unknown]
  - Syncope [Recovering/Resolving]
  - Neck pain [Recovering/Resolving]
  - Hypotension [Unknown]
  - Vision blurred [Unknown]
  - Wrong technique in product usage process [Unknown]
  - Dizziness [Recovered/Resolved]
  - Pain in jaw [Recovering/Resolving]

NARRATIVE: CASE EVENT DATE: 20160501
